FAERS Safety Report 15001940 (Version 1)
Quarter: 2018Q2

REPORT INFORMATION
  Report Type: Spontaneous
  Country: FR (occurrence: FR)
  Receive Date: 20180612
  Receipt Date: 20180612
  Transmission Date: 20180711
  Serious: Yes (Death, Hospitalization)
  Sender: FDA-Public Use
  Company Number: FR-ELI_LILLY_AND_COMPANY-FR201806002087

PATIENT
  Age: 62 Year
  Sex: Female

DRUGS (3)
  1. CISPLATINE [Concomitant]
     Active Substance: CISPLATIN
     Indication: BRONCHIAL CARCINOMA
     Dosage: UNK, CYCLICAL
     Route: 065
     Dates: start: 20180517
  2. AVASTIN [Concomitant]
     Active Substance: BEVACIZUMAB
     Indication: BRONCHIAL CARCINOMA
     Dosage: UNK, CYCLICAL
     Route: 065
     Dates: start: 20180517
  3. ALIMTA [Suspect]
     Active Substance: PEMETREXED DISODIUM
     Indication: BRONCHIAL CARCINOMA
     Dosage: UNK, UNKNOWN
     Route: 065
     Dates: start: 20180517

REACTIONS (2)
  - Renal failure [Fatal]
  - Off label use [Unknown]

NARRATIVE: CASE EVENT DATE: 20180517
